FAERS Safety Report 8728751 (Version 3)
Quarter: 2012Q4

REPORT INFORMATION
  Report Type: Report from Study
  Country: FR (occurrence: FR)
  Receive Date: 20120817
  Receipt Date: 20121018
  Transmission Date: 20130627
  Serious: Yes (Death, Hospitalization)
  Sender: FDA-Public Use
  Company Number: FR-AMGEN-FRACT2012044048

PATIENT
  Age: 83 Year
  Sex: Male

DRUGS (12)
  1. PANITUMUMAB [Suspect]
     Indication: GASTROOESOPHAGEAL CANCER
     Dosage: 390 mg, UNK
     Route: 042
     Dates: start: 20120418, end: 20120529
  2. OXALIPLATIN [Concomitant]
     Indication: GASTROOESOPHAGEAL CANCER
     Dosage: 145 mg, UNK
     Route: 042
     Dates: start: 20120418, end: 20120529
  3. 5 FU [Concomitant]
     Indication: GASTROOESOPHAGEAL CANCER
     Dosage: UNK
     Route: 042
     Dates: start: 20120418, end: 20120529
  4. FOLINATE CALCIUM [Concomitant]
     Indication: GASTROOESOPHAGEAL CANCER
     Dosage: 340 mg, UNK
     Route: 042
     Dates: start: 20120418, end: 20120529
  5. MORPHINE SULFATE [Concomitant]
     Indication: PAIN
     Dosage: UNK
     Route: 048
     Dates: start: 20120516
  6. EUPANTOL [Concomitant]
     Indication: ABDOMINAL PAIN UPPER
     Dosage: UNK
     Route: 048
  7. GAVISCON [Concomitant]
     Indication: ABDOMINAL PAIN UPPER
     Dosage: UNK
     Route: 048
     Dates: end: 20120622
  8. CLINUTREN HP ENERGY [Concomitant]
     Indication: NUTRITIONAL SUPPORT
     Dosage: UNK
     Route: 048
     Dates: start: 20120419
  9. FLECAINE [Concomitant]
     Indication: ATRIAL FIBRILLATION
  10. JANUVIA [Concomitant]
     Indication: DIABETES MELLITUS
     Dosage: 100 mg, UNK
     Route: 048
     Dates: end: 20120622
  11. EXFORGE [Concomitant]
     Indication: HYPERTENSION
     Dosage: UNK
     Dates: end: 20120610
  12. CORDARONE [Concomitant]
     Indication: HYPERTENSION
     Dosage: 200 mg, UNK
     Route: 048
     Dates: end: 20120622

REACTIONS (2)
  - Device related infection [Unknown]
  - Atrial fibrillation [Fatal]
